FAERS Safety Report 6919566-2 (Version None)
Quarter: 2010Q3

REPORT INFORMATION
  Report Type: 
  Country: None (occurrence: None)
  Receive Date: 20100809
  Receipt Date: 20100729
  Transmission Date: 20110219
  Serious: Yes (Other)
  Sender: FDA-Public Use
  Company Number: 016236

PATIENT
  Age: 36 Year
  Sex: Male

DRUGS (3)
  1. KEPPRA [Suspect]
     Indication: MYOCLONIC EPILEPSY
     Dosage: 1000 MG BID
     Dates: start: 20100419, end: 20100101
  2. PHENYTOIN [Concomitant]
  3. LAMOTRIGINE [Concomitant]

REACTIONS (3)
  - CONDITION AGGRAVATED [None]
  - MYOCLONIC EPILEPSY [None]
  - MYOCLONUS [None]
